FAERS Safety Report 9421747 (Version 1)
Quarter: 2013Q3

REPORT INFORMATION
  Report Type: Spontaneous
  Country: US (occurrence: US)
  Receive Date: 20130724
  Receipt Date: 20130724
  Transmission Date: 20140515
  Serious: Yes (Hospitalization)
  Sender: FDA-Public Use
  Company Number: US-BAYER-2013-088175

PATIENT
  Age: 29 Year
  Sex: Female
  Weight: 102.95 kg

DRUGS (5)
  1. YASMIN [Suspect]
  2. OCELLA [Suspect]
  3. BENADRYL [Concomitant]
  4. MOTRIN [Concomitant]
  5. XANAX [Concomitant]

REACTIONS (2)
  - Cerebrovascular accident [Recovering/Resolving]
  - Cerebral artery embolism [Recovering/Resolving]
